FAERS Safety Report 8472773-2 (Version None)
Quarter: 2012Q2

REPORT INFORMATION
  Report Type: 
  Country: None (occurrence: None)
  Receive Date: 20120627
  Receipt Date: 20120618
  Transmission Date: 20120825
  Serious: Yes (Death, Hospitalization)
  Sender: FDA-Public Use
  Company Number: JP-AMGEN-JPNCT2012039642

PATIENT
  Age: 86 Year
  Sex: Male
  Weight: 68 kg

DRUGS (14)
  1. EPADEL-S [Concomitant]
     Indication: HYPERLIPIDAEMIA
     Dosage: UNCERTAINTY
     Route: 048
  2. ROMIPLOSTIM - KHK [Suspect]
     Dosage: 2 MUG/KG, QWK
     Route: 058
     Dates: start: 20110510, end: 20110517
  3. PREDNISOLONE [Concomitant]
     Route: 048
     Dates: start: 20110511, end: 20110517
  4. SITAGLIPTIN PHOSPHATE [Concomitant]
     Indication: DIABETES MELLITUS
     Dosage: UNCERTAINTY
     Route: 048
  5. LASIX [Concomitant]
     Indication: CARDIAC FAILURE
     Dosage: UNCERTAINTY
     Route: 048
  6. PREDNISOLONE [Concomitant]
     Route: 048
     Dates: start: 20110518, end: 20110530
  7. OMEPRAZOLE [Concomitant]
     Indication: GASTRIC ULCER
     Dosage: UNCERTAINTY
     Route: 048
  8. ALLOPURINOL [Concomitant]
     Indication: HYPERURICAEMIA
     Dosage: UNCERTAINTY
     Route: 048
  9. PROMACTA [Concomitant]
     Indication: GASTRIC ULCER
     Dosage: UNCERTAINTY
     Route: 048
  10. ROMIPLOSTIM - KHK [Suspect]
     Indication: IDIOPATHIC THROMBOCYTOPENIC PURPURA
     Dosage: 1 MUG/KG, QWK
     Route: 058
     Dates: start: 20110419, end: 20110426
  11. ROMIPLOSTIM - KHK [Suspect]
     Dosage: 3 MUG/KG, QWK
     Route: 058
     Dates: start: 20110531, end: 20110531
  12. ROMIPLOSTIM - KHK [Suspect]
     Dosage: 4 MUG/KG, QWK
     Route: 058
     Dates: start: 20110607, end: 20110607
  13. PREDNISOLONE [Concomitant]
     Indication: IDIOPATHIC THROMBOCYTOPENIC PURPURA
     Route: 048
     Dates: start: 20071128, end: 20110510
  14. PROCYLIN [Concomitant]
     Indication: ARTERIAL OCCLUSIVE DISEASE
     Dosage: UNCERTAINTY
     Route: 048

REACTIONS (3)
  - BLOOD CREATINE PHOSPHOKINASE INCREASED [None]
  - RENAL FAILURE [None]
  - PNEUMONIA [None]
